FAERS Safety Report 23816932 (Version 1)
Quarter: 2024Q2

REPORT INFORMATION
  Report Type: Spontaneous
  Country: AU (occurrence: AU)
  Receive Date: 20240504
  Receipt Date: 20240504
  Transmission Date: 20240716
  Serious: Yes (Other)
  Sender: FDA-Public Use
  Company Number: AU-002147023-NVSC2024AU089463

PATIENT
  Age: 58 Year
  Sex: Male

DRUGS (2)
  1. IMATINIB [Suspect]
     Active Substance: IMATINIB
     Indication: Chronic eosinophilic leukaemia
     Dosage: UNK
     Route: 065
     Dates: start: 200406
  2. DASATINIB [Suspect]
     Active Substance: DASATINIB
     Indication: Chronic eosinophilic leukaemia
     Dosage: UNK
     Route: 065
     Dates: start: 200704, end: 2018

REACTIONS (4)
  - Leukaemia recurrent [Unknown]
  - White blood cell count increased [Recovering/Resolving]
  - Pleural effusion [Unknown]
  - Drug ineffective [Unknown]

NARRATIVE: CASE EVENT DATE: 20240101
